FAERS Safety Report 10347490 (Version 3)
Quarter: 2014Q3

REPORT INFORMATION
  Report Type: Spontaneous
  Country: US (occurrence: None)
  Receive Date: 20140725
  Receipt Date: 20140911
  Transmission Date: 20150326
  Serious: Yes (Other)
  Sender: FDA-Public Use
  Company Number: ADR-2014-01287

PATIENT
  Age: 60 Year
  Sex: Male

DRUGS (16)
  1. ZOLOFT [Suspect]
     Active Substance: SERTRALINE HYDROCHLORIDE
  2. HYDROMORPHONE INTRATHECAL [Suspect]
     Active Substance: HYDROMORPHONE
  3. SOMA [Suspect]
     Active Substance: CARISOPRODOL
  4. GLUCOSAMINE CHONDROITIN [Suspect]
     Active Substance: CHONDROITIN SULFATE (BOVINE)\GLUCOSAMINE HYDROCHLORIDE
     Dosage: 500 COMPLEX CAPSULE
  5. TRAZODONE HYDROCHLORIDE. [Suspect]
     Active Substance: TRAZODONE HYDROCHLORIDE
  6. PRIALT [Suspect]
     Active Substance: ZICONOTIDE ACETATE
  7. VITAMIN C [Suspect]
     Active Substance: ASCORBIC ACID
     Dosage: UNKNOWN CAPSULE
  8. SIMVASTATIN. [Suspect]
     Active Substance: SIMVASTATIN
  9. DILAUDID [Suspect]
     Active Substance: HYDROMORPHONE HYDROCHLORIDE
  10. BEE POLLEN [Suspect]
     Active Substance: BEE POLLEN
     Dosage: UNKNOWN CAPSULE
  11. IBUPROFEN. [Suspect]
     Active Substance: IBUPROFEN
  12. VITAMIN D [Suspect]
     Active Substance: CHOLECALCIFEROL
     Dosage: UNKNOWN CAPSULE
  13. VITAMIN B COMPLEX [Suspect]
     Active Substance: CYANOCOBALAMIN\DEXPANTHENOL\NIACINAMIDE\PYRIDOXINE HYDROCHLORIDE\RIBOFLAVIN 5^-PHOSPHATE SODIUM\THIAMINE HYDROCHLORIDE\VITAMIN B COMPLEX
     Dosage: COMPLEX CAPSULE
  14. BACLOFEN INTRATHECAL [Suspect]
     Active Substance: BACLOFEN
     Indication: PAIN
  15. MULTIVITAMIN [Suspect]
     Active Substance: VITAMINS
  16. TESTOSTERONE. [Suspect]
     Active Substance: TESTOSTERONE
     Dosage: 4 MG/24HR PATCH

REACTIONS (6)
  - Diarrhoea [None]
  - Device power source issue [None]
  - Feeling abnormal [None]
  - Device malfunction [None]
  - Device physical property issue [None]
  - Drug withdrawal syndrome [None]

NARRATIVE: CASE EVENT DATE: 20140603
